FAERS Safety Report 4765504-0 (Version None)
Quarter: 2005Q3

REPORT INFORMATION
  Report Type: 
  Country: None (occurrence: None)
  Receive Date: 20050912
  Receipt Date: 20050901
  Transmission Date: 20060218
  Serious: Yes (Other)
  Sender: FDA-Public Use
  Company Number: US-JNJFOC-20050900455

PATIENT
  Sex: Male
  Weight: 104.33 kg

DRUGS (4)
  1. REMICADE [Suspect]
     Indication: CROHN'S DISEASE
     Route: 042
  2. 6-MP [Concomitant]
  3. AMBIEN [Concomitant]
  4. FLAGYL [Concomitant]

REACTIONS (3)
  - CORNEAL TRANSPLANT [None]
  - COUGH [None]
  - NIGHT SWEATS [None]
